FAERS Safety Report 9434873 (Version 3)
Quarter: 2014Q3

REPORT INFORMATION
  Report Type: Spontaneous
  Country: US (occurrence: US)
  Receive Date: 20130801
  Receipt Date: 20140723
  Transmission Date: 20150326
  Serious: Yes (Hospitalization, Other)
  Sender: FDA-Public Use
  Company Number: US-009507513-1307USA017114

PATIENT
  Sex: Female
  Weight: 71.2 kg

DRUGS (1)
  1. NUVARING [Suspect]
     Active Substance: ETHINYL ESTRADIOL\ETONOGESTREL
     Indication: CONTRACEPTION
     Dosage: 0.12-0.015 MG/24 HR, AS DIRECTED
     Route: 067
     Dates: start: 20130205, end: 20130211

REACTIONS (5)
  - Bundle branch block [Unknown]
  - Coagulopathy [Unknown]
  - Pulmonary embolism [Unknown]
  - Dysmenorrhoea [Unknown]
  - Pulmonary embolism [Unknown]

NARRATIVE: CASE EVENT DATE: 201302
